FAERS Safety Report 12372204 (Version 1)
Quarter: 2016Q2

REPORT INFORMATION
  Report Type: Spontaneous
  Country: JP (occurrence: JP)
  Receive Date: 20160516
  Receipt Date: 20160516
  Transmission Date: 20160815
  Serious: Yes (Hospitalization)
  Sender: FDA-Public Use
  Company Number: JP-PFIZER INC-2016173038

PATIENT
  Age: 94 Year
  Sex: Female

DRUGS (2)
  1. LYRICA [Suspect]
     Active Substance: PREGABALIN
     Indication: PAIN IN EXTREMITY
     Dosage: 25 MG, 1X/DAY
     Route: 048
     Dates: start: 20160308, end: 20160314
  2. LYRICA [Suspect]
     Active Substance: PREGABALIN
     Dosage: 75 MG, 2X/DAY
     Route: 048
     Dates: start: 20160315

REACTIONS (4)
  - General physical health deterioration [Unknown]
  - Restlessness [Unknown]
  - Tremor [Unknown]
  - Drug ineffective [Unknown]
